FAERS Safety Report 12541408 (Version 3)
Quarter: 2016Q3

REPORT INFORMATION
  Report Type: Spontaneous
  Country: US (occurrence: US)
  Receive Date: 20160708
  Receipt Date: 20160715
  Transmission Date: 20161109
  Serious: Yes (Other)
  Sender: FDA-Public Use
  Company Number: US-JNJFOC-20160627596

PATIENT
  Age: 56 Year
  Sex: Female

DRUGS (2)
  1. IBUPROFEN. [Suspect]
     Active Substance: IBUPROFEN
     Route: 048
  2. IBUPROFEN. [Suspect]
     Active Substance: IBUPROFEN
     Indication: HEADACHE
     Dosage: DOSE: UP TO 3200MG
     Route: 048

REACTIONS (4)
  - Overdose [Recovering/Resolving]
  - Tubulointerstitial nephritis [Recovering/Resolving]
  - Evans syndrome [Recovering/Resolving]
  - Acute kidney injury [Recovering/Resolving]
